FAERS Safety Report 4528443-6 (Version None)
Quarter: 2004Q4

REPORT INFORMATION
  Report Type: 
  Country: None (occurrence: None)
  Receive Date: 20041216
  Receipt Date: 20041206
  Transmission Date: 20050328
  Serious: Yes (Hospitalization)
  Sender: FDA-Public Use
  Company Number: CA-ABBOTT-04P-028-0283003-00

PATIENT
  Sex: Male

DRUGS (2)
  1. KALETRA [Suspect]
     Indication: DRUG USE FOR UNKNOWN INDICATION
     Dosage: 800/200MG
     Route: 048
     Dates: start: 20040115
  2. ZIDOVUDINE W/LAMIVUDINE [Concomitant]
     Indication: DRUG USE FOR UNKNOWN INDICATION
     Dosage: 600/300
     Route: 048
     Dates: start: 20040115

REACTIONS (2)
  - DEPENDENCE [None]
  - SUICIDAL IDEATION [None]
